FAERS Safety Report 21013871 (Version 2)
Quarter: 2022Q3

REPORT INFORMATION
  Report Type: Spontaneous
  Country: US (occurrence: US)
  Receive Date: 20220627
  Receipt Date: 20220730
  Transmission Date: 20221026
  Serious: No
  Sender: FDA-Public Use
  Company Number: US-SA-SAC20220622000944

PATIENT
  Sex: Female

DRUGS (1)
  1. DUPIXENT [Suspect]
     Active Substance: DUPILUMAB
     Indication: Dermatitis atopic
     Dosage: 200 MG, QOW
     Route: 058

REACTIONS (7)
  - Skin discolouration [Unknown]
  - Feeling abnormal [Unknown]
  - Dry skin [Unknown]
  - Pruritus [Unknown]
  - Eczema [Unknown]
  - Rash macular [Unknown]
  - Rash pruritic [Unknown]
